FAERS Safety Report 26098160 (Version 2)
Quarter: 2025Q4

REPORT INFORMATION
  Report Type: Spontaneous
  Country: EU (occurrence: EU)
  Receive Date: 20251127
  Receipt Date: 20251202
  Transmission Date: 20260119
  Serious: Yes (Life-Threatening, Hospitalization)
  Sender: TAIHO ONCOLOGY INC
  Company Number: None

PATIENT
  Age: 73 Year
  Sex: Male

DRUGS (1)
  1. INQOVI [Suspect]
     Active Substance: CEDAZURIDINE\DECITABINE
     Indication: Acute myeloid leukaemia
     Dosage: 1 DF (35 MG/100 MG), DAILY (5 TABLETS) FOR 5 DAYS
     Route: 048
     Dates: start: 20250912, end: 20250925

REACTIONS (2)
  - Escherichia sepsis [Not Recovered/Not Resolved]
  - Pancytopenia [Not Recovered/Not Resolved]

NARRATIVE: CASE EVENT DATE: 20250925
